FAERS Safety Report 7197110-5 (Version None)
Quarter: 2010Q4

REPORT INFORMATION
  Report Type: 
  Country: None (occurrence: None)
  Receive Date: 20101224
  Receipt Date: 20101210
  Transmission Date: 20110411
  Serious: Yes (Hospitalization)
  Sender: FDA-Public Use
  Company Number: PHHO2010US18815

PATIENT
  Sex: Female
  Weight: 67.3 kg

DRUGS (12)
  1. AFINITOR [Suspect]
     Indication: ACUTE MYELOID LEUKAEMIA
     Dosage: 5 MG, QD
     Route: 048
     Dates: start: 20101129
  2. CGP 41251 [Suspect]
     Indication: ACUTE MYELOID LEUKAEMIA
     Dosage: 50 MG, BI-DAILY
     Route: 048
     Dates: start: 20101130, end: 20101205
  3. HYDROXYUREA [Concomitant]
  4. ROBITUSSIN [Concomitant]
  5. ACYCLOVIR SODIUM [Concomitant]
  6. BENADRYL [Concomitant]
  7. CARVEDILOL [Concomitant]
  8. CIPROFLAXACIN [Concomitant]
  9. FOLIC ACID [Concomitant]
  10. GUAIFENESIN [Concomitant]
  11. MULTI-VITAMINS [Concomitant]
  12. OMEPRAZOLE [Concomitant]

REACTIONS (8)
  - CHEST X-RAY ABNORMAL [None]
  - DYSPNOEA [None]
  - FLUSHING [None]
  - HYPOXIA [None]
  - LUNG DISORDER [None]
  - PLEURAL EFFUSION [None]
  - TACHYPNOEA [None]
  - TRANSFUSION REACTION [None]
